FAERS Safety Report 7388855-2 (Version None)
Quarter: 2011Q2

REPORT INFORMATION
  Report Type: 
  Country: None (occurrence: None)
  Receive Date: 20110401
  Receipt Date: 20110323
  Transmission Date: 20111010
  Serious: Yes (Other)
  Sender: FDA-Public Use
  Company Number: AT-NOVOPROD-323438

PATIENT
  Sex: Male
  Weight: 25 kg

DRUGS (2)
  1. NORDITROPIN [Suspect]
     Indication: GROWTH HORMONE DEFICIENCY
     Dosage: 0.6 MG, QD
     Route: 058
     Dates: start: 20080101
  2. VIVAGLOBIN                         /00025201/ [Concomitant]
     Route: 058

REACTIONS (1)
  - MYCOSIS FUNGOIDES [None]
